FAERS Safety Report 22381443 (Version 1)
Quarter: 2023Q2

REPORT INFORMATION
  Report Type: Spontaneous
  Country: GB (occurrence: GB)
  Receive Date: 20230530
  Receipt Date: 20230530
  Transmission Date: 20230721
  Serious: Yes (Hospitalization)
  Sender: FDA-Public Use
  Company Number: GB-SPRINGWORKS THERAPEUTICS-SW-000950

PATIENT

DRUGS (6)
  1. TAMSULOSIN [Suspect]
     Active Substance: TAMSULOSIN
     Indication: Urinary tract disorder
     Dosage: 400 MICROGRAM, ONCE A DAY (400 MICROGRAM, QD)
     Route: 065
     Dates: start: 20230410
  2. NIROGACESTAT [Suspect]
     Active Substance: NIROGACESTAT
     Indication: Desmoid tumour
     Dosage: 140 MILLIGRAM, TWO TIMES A DAY (140 MILLIGRAM, BID)
     Route: 048
     Dates: start: 20230317, end: 20230410
  3. AMITRIPTYLINE HYDROCHLORIDE [Concomitant]
     Active Substance: AMITRIPTYLINE HYDROCHLORIDE
     Indication: Pain in extremity
     Dosage: 40 MILLIGRAM (40 MILLIGRAM NOCTE)
     Route: 065
  4. LACTULOSE [Concomitant]
     Active Substance: LACTULOSE
     Indication: Constipation
     Dosage: 10 MILLILITER
     Route: 065
     Dates: start: 20230415
  5. MORPHINE SULFATE [Concomitant]
     Active Substance: MORPHINE SULFATE
     Indication: Pain
     Dosage: 70 MILLIGRAM, TWO TIMES A DAY (70 MILLIGRAM, BID)
     Route: 065
  6. ONDANSETRON [Concomitant]
     Active Substance: ONDANSETRON
     Indication: Nausea
     Dosage: 8 MILLIGRAM (8 MILLIGRAM, PRN BD)
     Route: 065
     Dates: start: 20230410, end: 20230414

REACTIONS (1)
  - Ureterolithiasis [Recovering/Resolving]

NARRATIVE: CASE EVENT DATE: 20230410
